FAERS Safety Report 8763757 (Version 1)
Quarter: 2012Q4

REPORT INFORMATION
  Report Type: Spontaneous
  Country: US (occurrence: None)
  Receive Date: 20120831
  Receipt Date: 20120831
  Transmission Date: 20130627
  Serious: No
  Sender: FDA-Public Use
  Company Number: None

PATIENT
  Age: 52 Year
  Sex: Female
  Weight: 63.5 kg

DRUGS (1)
  1. VENLAFAXINE [Suspect]
     Indication: HOT FLASHES
     Dates: start: 20120830, end: 20120830

REACTIONS (8)
  - Hyperhidrosis [None]
  - Tremor [None]
  - Dizziness [None]
  - Palpitations [None]
  - Dyspnoea [None]
  - Vomiting [None]
  - Activities of daily living impaired [None]
  - Feeling abnormal [None]
